FAERS Safety Report 17183117 (Version 1)
Quarter: 2019Q4

REPORT INFORMATION
  Report Type: Spontaneous
  Country: FR (occurrence: FR)
  Receive Date: 20191220
  Receipt Date: 20191220
  Transmission Date: 20200122
  Serious: Yes (Life-Threatening, Hospitalization)
  Sender: FDA-Public Use
  Company Number: FR-TEVA-2019-FR-1153782

PATIENT
  Age: 86 Year
  Sex: Male
  Weight: 59 kg

DRUGS (7)
  1. URAPIDIL MYLAN [Concomitant]
     Active Substance: URAPIDIL
     Indication: ESSENTIAL HYPERTENSION
  2. METFORMINE ARROW 1000 MG, COMPRIM? PELLICUL? S?CABLE [Suspect]
     Active Substance: METFORMIN HYDROCHLORIDE
     Indication: TYPE 2 DIABETES MELLITUS
     Dosage: 2000 MILLIGRAM
     Route: 048
  3. SITAGLIPTINE [Suspect]
     Active Substance: SITAGLIPTIN
     Indication: TYPE 2 DIABETES MELLITUS
     Dosage: 100 MILLIGRAM
     Route: 048
  4. PREVISCAN 20 MG, COMPRIM? S?CABLE [Concomitant]
     Active Substance: FLUINDIONE
  5. ZESTORETIC [Concomitant]
     Active Substance: HYDROCHLOROTHIAZIDE\LISINOPRIL
     Indication: ESSENTIAL HYPERTENSION
  6. NOVONORM 1 MG, COMPRIM? [Suspect]
     Active Substance: REPAGLINIDE
     Indication: TYPE 2 DIABETES MELLITUS
     Dosage: 2 MILLIGRAM
     Route: 048
     Dates: end: 20191111
  7. CHLORHYDRATE DE LERCANIDIPINE [Concomitant]
     Active Substance: LERCANIDIPINE HYDROCHLORIDE
     Indication: ESSENTIAL HYPERTENSION

REACTIONS (1)
  - Hypoglycaemic seizure [Recovered/Resolved]

NARRATIVE: CASE EVENT DATE: 20191111
